FAERS Safety Report 8847264 (Version 8)
Quarter: 2015Q3

REPORT INFORMATION
  Report Type: Spontaneous
  Country: US (occurrence: US)
  Receive Date: 20121018
  Receipt Date: 20150708
  Transmission Date: 20151125
  Serious: Yes (Disabling, Other)
  Sender: FDA-Public Use
  Company Number: US-009507513-1210USA006867

PATIENT
  Sex: Male

DRUGS (5)
  1. FINASTERIDE. [Suspect]
     Active Substance: FINASTERIDE
     Dosage: 5 MG, UNK
     Route: 048
     Dates: start: 20080701, end: 20140204
  2. PROPECIA [Suspect]
     Active Substance: FINASTERIDE
     Indication: ALOPECIA
     Dosage: 1 MG, QD
     Route: 048
     Dates: start: 1999, end: 2012
  3. PROPECIA [Suspect]
     Active Substance: FINASTERIDE
     Dosage: UNK
     Route: 048
     Dates: start: 2000, end: 2012
  4. FINASTERIDE. [Suspect]
     Active Substance: FINASTERIDE
     Indication: ALOPECIA
     Dosage: 5 MG, UNK
     Route: 048
     Dates: start: 2000, end: 2012
  5. ZOCOR [Concomitant]
     Active Substance: SIMVASTATIN
     Indication: BLOOD CHOLESTEROL INCREASED
     Dosage: UNK
     Route: 048

REACTIONS (25)
  - Spinal cord compression [Not Recovered/Not Resolved]
  - Depression [Not Recovered/Not Resolved]
  - Genital atrophy [Not Recovered/Not Resolved]
  - Asthenia [Unknown]
  - Surgery [Unknown]
  - Sexual dysfunction [Not Recovered/Not Resolved]
  - Inappropriate schedule of drug administration [Unknown]
  - Hypogonadism [Unknown]
  - Abdominal operation [Unknown]
  - Penis injury [Unknown]
  - Peyronie^s disease [Unknown]
  - Cognitive disorder [Not Recovered/Not Resolved]
  - Libido decreased [Not Recovered/Not Resolved]
  - Feeling abnormal [Not Recovered/Not Resolved]
  - Memory impairment [Not Recovered/Not Resolved]
  - Pollakiuria [Unknown]
  - Male orgasmic disorder [Not Recovered/Not Resolved]
  - Shoulder operation [Unknown]
  - Anxiety [Not Recovered/Not Resolved]
  - Ejaculation disorder [Not Recovered/Not Resolved]
  - Sexual dysfunction [Not Recovered/Not Resolved]
  - Incorrect dose administered [Unknown]
  - Drug administration error [Unknown]
  - Erectile dysfunction [Not Recovered/Not Resolved]
  - Back disorder [Not Recovered/Not Resolved]

NARRATIVE: CASE EVENT DATE: 2000
